FAERS Safety Report 13825948 (Version 3)
Quarter: 2018Q3

REPORT INFORMATION
  Report Type: Spontaneous
  Country: DK (occurrence: DK)
  Receive Date: 20170802
  Receipt Date: 20180919
  Transmission Date: 20181010
  Serious: Yes (Disabling, Other)
  Sender: FDA-Public Use
  Company Number: DK-MYLANLABS-2017M1045761

PATIENT
  Age: 74 Year
  Sex: Female

DRUGS (3)
  1. ZOLEDRONIC ACID [Suspect]
     Active Substance: ZOLEDRONIC ACID
     Indication: OSTEOPOROSIS
     Dosage: UNK
     Route: 042
     Dates: start: 20101004, end: 20131106
  2. PROLIA [Suspect]
     Active Substance: DENOSUMAB
     Indication: OSTEOPOROSIS
     Dosage: UNK (60 MG/ML, Q6MO)
     Route: 058
     Dates: start: 20131106, end: 201704
  3. ALENDRONATE [Suspect]
     Active Substance: ALENDRONATE SODIUM
     Indication: OSTEOPOROSIS
     Dosage: UNK
     Route: 065
     Dates: start: 200804, end: 201003

REACTIONS (10)
  - Loose tooth [Unknown]
  - Jaw operation [Recovered/Resolved]
  - Osteonecrosis of jaw [Not Recovered/Not Resolved]
  - Exposed bone in jaw [Not Recovered/Not Resolved]
  - Toothache [Unknown]
  - Dental alveolar anomaly [Not Recovered/Not Resolved]
  - Denture wearer [Not Recovered/Not Resolved]
  - Dental fistula [Not Recovered/Not Resolved]
  - Gingival recession [Unknown]
  - Tooth extraction [Recovered/Resolved with Sequelae]

NARRATIVE: CASE EVENT DATE: 2017
